FAERS Safety Report 6303666-4 (Version None)
Quarter: 2009Q3

REPORT INFORMATION
  Report Type: 
  Country: None (occurrence: None)
  Receive Date: 20090807
  Receipt Date: 20090807
  Transmission Date: 20100115
  Serious: Yes (Other)
  Sender: FDA-Public Use
  Company Number: None

PATIENT
  Age: 7 Year
  Sex: Female
  Weight: 38.1022 kg

DRUGS (1)
  1. SINGULAIR [Suspect]
     Indication: ASTHMA
     Dosage: 5MG  DAILY -HS- PO
     Route: 048
     Dates: start: 20090801, end: 20090805

REACTIONS (4)
  - DISORIENTATION [None]
  - FATIGUE [None]
  - RESTLESSNESS [None]
  - SCREAMING [None]
